FAERS Safety Report 15535255 (Version 1)
Quarter: 2018Q4

REPORT INFORMATION
  Report Type: Spontaneous
  Country: US (occurrence: US)
  Receive Date: 20181022
  Receipt Date: 20181022
  Transmission Date: 20190205
  Serious: Yes (Other)
  Sender: FDA-Public Use
  Company Number: US-DRREDDYS-USA/USA/18/0104818

PATIENT
  Age: 4 Year
  Sex: Female

DRUGS (7)
  1. TACROLIMUS. [Suspect]
     Active Substance: TACROLIMUS
     Indication: GRAFT VERSUS HOST DISEASE
     Route: 065
  2. MYCOPHENOLATE [Suspect]
     Active Substance: MYCOPHENOLIC ACID
     Indication: GRAFT VERSUS HOST DISEASE
     Route: 065
  3. FLUDARABINE [Concomitant]
     Active Substance: FLUDARABINE PHOSPHATE
     Indication: PROPHYLAXIS
     Route: 065
  4. THIOTEPA. [Concomitant]
     Active Substance: THIOTEPA
     Indication: PROPHYLAXIS
     Route: 065
  5. ALEMTUZUMAB [Concomitant]
     Active Substance: ALEMTUZUMAB
     Indication: PROPHYLAXIS
     Route: 065
  6. BUSULFAN. [Concomitant]
     Active Substance: BUSULFAN
     Indication: PROPHYLAXIS
     Route: 065
  7. CYCLOPHOSPHAMIDE. [Suspect]
     Active Substance: CYCLOPHOSPHAMIDE
     Indication: GRAFT VERSUS HOST DISEASE
     Dosage: DAY 3 AND 4
     Route: 065

REACTIONS (8)
  - Cytomegalovirus viraemia [Recovered/Resolved]
  - Viraemia [Recovered/Resolved]
  - Pneumocystis jirovecii pneumonia [Unknown]
  - Infection [Recovered/Resolved]
  - Reticulocytosis [Recovered/Resolved]
  - Enteritis [Recovered/Resolved]
  - Pneumonia [Recovered/Resolved]
  - Autoimmune haemolytic anaemia [Recovered/Resolved]
